FAERS Safety Report 15117371 (Version 1)
Quarter: 2018Q3

REPORT INFORMATION
  Report Type: Spontaneous
  Country: FR (occurrence: FR)
  Receive Date: 20180706
  Receipt Date: 20180706
  Transmission Date: 20181010
  Serious: Yes (Death, Hospitalization)
  Sender: FDA-Public Use
  Company Number: FR-BAYER-2018-122599

PATIENT
  Age: 66 Year
  Sex: Male
  Weight: 76 kg

DRUGS (1)
  1. NEXAVAR [Suspect]
     Active Substance: SORAFENIB
     Indication: HEPATOCELLULAR CARCINOMA
     Dosage: 800 MG, UNK
     Route: 048
     Dates: start: 20180503, end: 20180612

REACTIONS (2)
  - Congestive cardiomyopathy [Fatal]
  - Ejection fraction decreased [Fatal]

NARRATIVE: CASE EVENT DATE: 20180612
